FAERS Safety Report 13106807 (Version 2)
Quarter: 2017Q1

REPORT INFORMATION
  Report Type: Spontaneous
  Country: US (occurrence: US)
  Receive Date: 20170111
  Receipt Date: 20170119
  Transmission Date: 20170428
  Serious: Yes (Hospitalization)
  Sender: FDA-Public Use
  Company Number: US-IMPAX LABORATORIES, INC-2016-IPXL-02539

PATIENT
  Age: 76 Year
  Sex: Female
  Weight: 54 kg

DRUGS (3)
  1. RYTARY [Suspect]
     Active Substance: CARBIDOPA\LEVODOPA
     Indication: PARKINSON^S DISEASE
     Dosage: (48.75/195) MG TWO CAPSULES, FOUR TIMES DAILY
     Route: 048
     Dates: start: 2016
  2. TRAZODONE [Concomitant]
     Active Substance: TRAZODONE HYDROCHLORIDE
     Indication: SLEEP DISORDER
     Dosage: UNK
     Route: 065
  3. WELLBUTRIN [Concomitant]
     Active Substance: BUPROPION HYDROCHLORIDE
     Indication: AFFECTIVE DISORDER
     Dosage: UNK
     Route: 065

REACTIONS (7)
  - Dehydration [Recovered/Resolved]
  - Hip fracture [Recovered/Resolved]
  - Fall [Recovered/Resolved]
  - Vomiting [Recovering/Resolving]
  - Constipation [Recovered/Resolved]
  - Feeling abnormal [Recovering/Resolving]
  - Lethargy [Recovering/Resolving]

NARRATIVE: CASE EVENT DATE: 201611
